FAERS Safety Report 9632490 (Version 2)
Quarter: 2014Q2

REPORT INFORMATION
  Report Type: Spontaneous
  Country: US (occurrence: US)
  Receive Date: 20131018
  Receipt Date: 20140407
  Transmission Date: 20141212
  Serious: Yes (Hospitalization)
  Sender: FDA-Public Use
  Company Number: US-B.I. PHARMACEUTICALS,INC./RIDGEFIELD-2013-BI-32813BP

PATIENT
  Sex: Female
  Weight: 100.24 kg

DRUGS (13)
  1. PRADAXA [Suspect]
     Indication: ATRIAL FIBRILLATION
     Dosage: 300 MG
     Route: 065
     Dates: start: 201012, end: 20111025
  2. ATENOLOL [Concomitant]
     Dosage: 25 MG
     Route: 048
  3. BENICAR [Concomitant]
     Route: 048
  4. LISINOPRIL [Concomitant]
     Dosage: 20 MG
     Route: 048
  5. SYNTHROID [Concomitant]
     Dosage: 50 MCG
     Route: 048
  6. PRILOSEC [Concomitant]
     Route: 048
  7. OMEGA 3 [Concomitant]
     Route: 048
  8. NORVASC [Concomitant]
     Dosage: 5 MG
     Route: 048
  9. POTASSIUM [Concomitant]
     Dosage: 1200 MG
     Route: 048
  10. VITAMIN D [Concomitant]
     Route: 048
  11. MAG [Concomitant]
     Dosage: 500 MG
     Route: 048
  12. TRIAM/HCTZ [Concomitant]
     Route: 048
  13. PRAVASTATIN [Concomitant]
     Dosage: 20 MG
     Route: 048

REACTIONS (4)
  - Gastrointestinal haemorrhage [Unknown]
  - Diarrhoea [Unknown]
  - Fatigue [Unknown]
  - Abdominal pain [Unknown]
